FAERS Safety Report 5878683-9 (Version None)
Quarter: 2008Q3

REPORT INFORMATION
  Report Type: 
  Country: None (occurrence: None)
  Receive Date: 20080910
  Receipt Date: 20080910
  Transmission Date: 20090109
  Serious: Yes (Death)
  Sender: FDA-Public Use
  Company Number: None

PATIENT
  Sex: Male
  Weight: 117 kg

DRUGS (2)
  1. BORTEZOMIB [Suspect]
     Indication: MULTIPLE MYELOMA
     Dosage: 2.4 MG TWICE PER WEEK IV DRIP
     Route: 041
     Dates: start: 20080821, end: 20080828
  2. THALIDOMIDE [Suspect]
     Indication: MULTIPLE MYELOMA
     Dosage: 50MG DAILY PO
     Route: 048
     Dates: start: 20080826, end: 20080828

REACTIONS (10)
  - BLOOD PRESSURE DECREASED [None]
  - DYSPNOEA [None]
  - HAEMATURIA [None]
  - HEART RATE INCREASED [None]
  - LETHARGY [None]
  - MULTI-ORGAN FAILURE [None]
  - OXYGEN SATURATION DECREASED [None]
  - PANCYTOPENIA [None]
  - RHABDOMYOLYSIS [None]
  - TACHYPNOEA [None]
